FAERS Safety Report 5859496-0 (Version None)
Quarter: 2008Q3

REPORT INFORMATION
  Report Type: 
  Country: None (occurrence: None)
  Receive Date: 20080827
  Receipt Date: 20080821
  Transmission Date: 20090109
  Serious: Yes (Hospitalization, Other)
  Sender: FDA-Public Use
  Company Number: A0718750A

PATIENT
  Age: 60 Year
  Sex: Male
  Weight: 100 kg

DRUGS (5)
  1. AVANDIA [Suspect]
     Dosage: 4MG PER DAY
     Dates: start: 20050401, end: 20070301
  2. AVANDAMET [Suspect]
     Dates: start: 20050401, end: 20070301
  3. METFORMIN HCL [Concomitant]
     Dates: start: 20050701, end: 20070301
  4. NPH [Concomitant]
     Dates: start: 20050101
  5. HUMULIN 70/30 [Concomitant]
     Dates: start: 20050101

REACTIONS (4)
  - ANGINA UNSTABLE [None]
  - CARDIOMYOPATHY [None]
  - CONDITION AGGRAVATED [None]
  - MYOCARDIAL INFARCTION [None]
